FAERS Safety Report 7027908-5 (Version None)
Quarter: 2010Q4

REPORT INFORMATION
  Report Type: 
  Country: None (occurrence: None)
  Receive Date: 20101005
  Receipt Date: 20100927
  Transmission Date: 20110411
  Serious: No
  Sender: FDA-Public Use
  Company Number: US-BIOGENIDEC-2010BI034157

PATIENT
  Age: 59 Year
  Sex: Female

DRUGS (3)
  1. TYSABRI [Suspect]
     Indication: MULTIPLE SCLEROSIS
     Route: 042
     Dates: start: 20050129, end: 20050101
  2. TYSABRI [Suspect]
     Route: 042
     Dates: start: 20060919
  3. MYOBLOC [Concomitant]
     Dates: start: 20100901

REACTIONS (2)
  - ANIMAL BITE [None]
  - URINARY TRACT INFECTION [None]
